FAERS Safety Report 8942259 (Version 1)
Quarter: 2012Q4

REPORT INFORMATION
  Report Type: Spontaneous
  Country: US (occurrence: None)
  Receive Date: 20121129
  Receipt Date: 20121129
  Transmission Date: 20130627
  Serious: Yes (Hospitalization)
  Sender: FDA-Public Use
  Company Number: None

PATIENT
  Sex: Female
  Weight: 79 kg

DRUGS (15)
  1. TAXOL [Suspect]
     Dates: end: 20121115
  2. CYCLOPHOSPHAMIDE [Suspect]
     Dates: end: 20120925
  3. DOXORUBICIN HYDROCHLORIDE [Suspect]
     Dates: end: 20120925
  4. ADVAIR DISKUS [Concomitant]
  5. AMBIEN [Concomitant]
  6. ATARAX PRN [Concomitant]
  7. BUSPAR [Concomitant]
  8. CETIRIZITNE HYDROCHLORIDE [Concomitant]
  9. CLONAZEPAM [Concomitant]
  10. COMPAZINE [Concomitant]
  11. DEXILANT [Concomitant]
  12. FLEXERIL [Concomitant]
  13. LUNESTA [Concomitant]
  14. OXYCODONE [Concomitant]
  15. PREDNISONE [Concomitant]

REACTIONS (6)
  - Crying [None]
  - Major depression [None]
  - Agitation [None]
  - Insomnia [None]
  - Delirium [None]
  - Impaired driving ability [None]
